FAERS Safety Report 4514270-2 (Version None)
Quarter: 2004Q4

REPORT INFORMATION
  Report Type: 
  Country: None (occurrence: None)
  Receive Date: 20041124
  Receipt Date: 20041105
  Transmission Date: 20050328
  Serious: Yes (Death)
  Sender: FDA-Public Use
  Company Number: FR_041105171

PATIENT
  Age: 45 Year
  Sex: Male

DRUGS (2)
  1. GEMZAR [Suspect]
     Indication: LUNG NEOPLASM MALIGNANT
     Dosage: 1522 MG
     Route: 050
     Dates: start: 20031014, end: 20031120
  2. PARAPLATINE (CARBOPLATIN SANOFI-SYNTHELABO) [Concomitant]

REACTIONS (3)
  - BLOOD CREATININE INCREASED [None]
  - BLOOD SODIUM DECREASED [None]
  - TUMOUR LYSIS SYNDROME [None]
